FAERS Safety Report 13647325 (Version 1)
Quarter: 2017Q2

REPORT INFORMATION
  Report Type: Spontaneous
  Country: US (occurrence: US)
  Receive Date: 20170613
  Receipt Date: 20170613
  Transmission Date: 20170830
  Serious: Yes (Other)
  Sender: FDA-Public Use
  Company Number: US-AKORN PHARMACEUTICALS-2017AKN00756

PATIENT
  Age: 8 Year
  Sex: Male

DRUGS (4)
  1. VORICONAZOLE. [Suspect]
     Active Substance: VORICONAZOLE
     Indication: ASPERGILLUS INFECTION
     Dosage: 216 MG, 2X/DAY
     Route: 042
  2. PEG/L-ASPARAGINASE [Suspect]
     Active Substance: PEGASPARGASE
     Indication: ACUTE LYMPHOCYTIC LEUKAEMIA
     Dosage: 2200 IU, UNK
     Route: 065
  3. METHOTREXATE. [Concomitant]
     Active Substance: METHOTREXATE
     Route: 065
  4. 6-MERCAPTOPURINE [Concomitant]
     Active Substance: MERCAPTOPURINE
     Route: 065

REACTIONS (3)
  - Acute hepatic failure [Recovered/Resolved]
  - Steatohepatitis [Recovered/Resolved]
  - Drug interaction [Recovered/Resolved]
